FAERS Safety Report 4514813-9 (Version None)
Quarter: 2004Q4

REPORT INFORMATION
  Report Type: 
  Country: None (occurrence: None)
  Receive Date: 20041129
  Receipt Date: 20041129
  Transmission Date: 20050328
  Serious: No
  Sender: FDA-Public Use
  Company Number: None

PATIENT
  Sex: Female
  Weight: 81.6475 kg

DRUGS (1)
  1. PERCOCET [Suspect]
     Indication: OSTEOARTHRITIS
     Dosage: 10 MG

REACTIONS (2)
  - HYPERSENSITIVITY [None]
  - RASH PRURITIC [None]
